FAERS Safety Report 9687923 (Version 1)
Quarter: 2013Q4

REPORT INFORMATION
  Report Type: Report from Study
  Country: JP (occurrence: JP)
  Receive Date: 20131114
  Receipt Date: 20131114
  Transmission Date: 20140711
  Serious: Yes (Other)
  Sender: FDA-Public Use
  Company Number: JP-PFIZER INC-2013319472

PATIENT
  Age: 56 Year
  Sex: Male
  Weight: 67.1 kg

DRUGS (7)
  1. XALKORI [Suspect]
     Indication: NON-SMALL CELL LUNG CANCER
     Dosage: 250 MG, 2X/DAY
     Route: 048
     Dates: start: 20130117, end: 20130207
  2. LOXONIN [Concomitant]
     Dosage: 60 MG, 3X/DAY
     Route: 048
  3. TAKEPRON [Concomitant]
     Dosage: 15 MG, 1X/DAY
     Route: 048
  4. HARNAL [Concomitant]
     Dosage: 0.2 MG, 1X/DAY
     Route: 048
  5. WARFARIN [Concomitant]
     Dosage: 1 MG, 1X/DAY
     Route: 048
  6. MAGMITT [Concomitant]
     Dosage: 330 MG, 3X/DAY
     Route: 048
  7. FENTOS [Concomitant]
     Dosage: 2 MG, 1X/DAY
     Route: 062

REACTIONS (1)
  - Interstitial lung disease [Recovering/Resolving]
